FAERS Safety Report 18379714 (Version 1)
Quarter: 2020Q4

REPORT INFORMATION
  Report Type: Spontaneous
  Country: US (occurrence: US)
  Receive Date: 20201014
  Receipt Date: 20201014
  Transmission Date: 20210114
  Serious: No
  Sender: FDA-Public Use
  Company Number: US-SHIRE-US202032488

PATIENT
  Age: 41 Year
  Sex: Male
  Weight: 113.38 kg

DRUGS (3)
  1. STRATTERA [Concomitant]
     Active Substance: ATOMOXETINE HYDROCHLORIDE
     Indication: PRODUCT USED FOR UNKNOWN INDICATION
  2. VYVANSE [Suspect]
     Active Substance: LISDEXAMFETAMINE DIMESYLATE
     Indication: ATTENTION DEFICIT HYPERACTIVITY DISORDER
     Dosage: 70 MILLIGRAM, 1X/DAY:QD
     Route: 048
     Dates: start: 2016
  3. VYVANSE [Suspect]
     Active Substance: LISDEXAMFETAMINE DIMESYLATE
     Dosage: 20 MILLIGRAM, 1X/DAY:QD
     Route: 065
     Dates: start: 2016, end: 2016

REACTIONS (10)
  - Unevaluable event [Unknown]
  - Suspected product tampering [Recovered/Resolved]
  - Drug ineffective [Not Recovered/Not Resolved]
  - Back injury [Not Recovered/Not Resolved]
  - Weight increased [Unknown]
  - Intentional dose omission [Not Recovered/Not Resolved]
  - Gastrointestinal disorder [Unknown]
  - Fall [Recovered/Resolved]
  - Feeling abnormal [Unknown]
  - Product physical issue [Unknown]

NARRATIVE: CASE EVENT DATE: 201605
